FAERS Safety Report 16499542 (Version 2)
Quarter: 2019Q3

REPORT INFORMATION
  Report Type: Spontaneous
  Country: CO (occurrence: CO)
  Receive Date: 20190701
  Receipt Date: 20190830
  Transmission Date: 20191004
  Serious: Yes (Hospitalization, Other)
  Sender: FDA-Public Use
  Company Number: CO-AMGEN-COLSP2019103829

PATIENT
  Age: 20 Year
  Sex: Male

DRUGS (1)
  1. ENBREL [Suspect]
     Active Substance: ETANERCEPT
     Indication: ANKYLOSING SPONDYLITIS
     Dosage: 50 MG, UNK
     Route: 058
     Dates: start: 2013

REACTIONS (3)
  - Systemic lupus erythematosus [Not Recovered/Not Resolved]
  - Swollen tongue [Not Recovered/Not Resolved]
  - Rash generalised [Not Recovered/Not Resolved]
